FAERS Safety Report 4894766-4 (Version None)
Quarter: 2006Q1

REPORT INFORMATION
  Report Type: 
  Country: None (occurrence: None)
  Receive Date: 20060126
  Receipt Date: 20060126
  Transmission Date: 20060701
  Serious: Yes (Life-Threatening, Hospitalization)
  Sender: FDA-Public Use
  Company Number: None

PATIENT
  Age: 60 Year
  Sex: Female
  Weight: 78.2 kg

DRUGS (1)
  1. NUBAIN [Suspect]
     Indication: PAIN
     Dosage: 10 MG ONCE IV
     Route: 042
     Dates: start: 20050104, end: 20060104

REACTIONS (3)
  - CARDIO-RESPIRATORY ARREST [None]
  - PYREXIA [None]
  - UNRESPONSIVE TO VERBAL STIMULI [None]
